FAERS Safety Report 11087126 (Version 1)
Quarter: 2015Q2

REPORT INFORMATION
  Report Type: Spontaneous
  Country: US (occurrence: None)
  Receive Date: 20150501
  Receipt Date: 20150501
  Transmission Date: 20150821
  Serious: No
  Sender: FDA-Public Use
  Company Number: None

PATIENT
  Age: 34 Year
  Sex: Female
  Weight: 76.66 kg

DRUGS (5)
  1. DULOXETINE HCL DR 50MG TORRENT PHARMACY [Suspect]
     Active Substance: DULOXETINE HYDROCHLORIDE
     Indication: DEPRESSION
     Route: 048
     Dates: start: 20140331, end: 20150430
  2. DULOXETINE HCL DR 50MG TORRENT PHARMACY [Suspect]
     Active Substance: DULOXETINE HYDROCHLORIDE
     Indication: ANXIETY
     Route: 048
     Dates: start: 20140331, end: 20150430
  3. CLONAZEPAM. [Concomitant]
     Active Substance: CLONAZEPAM
  4. DULOXETINE HCL [Concomitant]
     Active Substance: DULOXETINE HYDROCHLORIDE
  5. PRENATAL VITAMIN [Concomitant]
     Active Substance: VITAMINS

REACTIONS (4)
  - Drug ineffective [None]
  - Condition aggravated [None]
  - Emotional disorder [None]
  - Product substitution issue [None]
